FAERS Safety Report 23648032 (Version 1)
Quarter: 2024Q1

REPORT INFORMATION
  Report Type: Spontaneous
  Country: GB (occurrence: GB)
  Receive Date: 20240319
  Receipt Date: 20240319
  Transmission Date: 20240409
  Serious: Yes (Other)
  Sender: FDA-Public Use
  Company Number: None

PATIENT
  Age: 56 Year
  Sex: Female
  Weight: 62 kg

DRUGS (1)
  1. ARIPIPRAZOLE [Suspect]
     Active Substance: ARIPIPRAZOLE
     Indication: Product used for unknown indication
     Dosage: 1 MG
     Route: 065
     Dates: start: 20240306, end: 20240308

REACTIONS (2)
  - Pharyngeal swelling [Recovering/Resolving]
  - Dysphagia [Recovering/Resolving]

NARRATIVE: CASE EVENT DATE: 20240308
